FAERS Safety Report 7372198-7 (Version None)
Quarter: 2011Q1

REPORT INFORMATION
  Report Type: 
  Country: None (occurrence: None)
  Receive Date: 20110311
  Receipt Date: 20110304
  Transmission Date: 20110831
  Serious: Yes (Other)
  Sender: FDA-Public Use
  Company Number: 2011SP010240

PATIENT
  Age: 54 Year
  Sex: Female

DRUGS (1)
  1. SAPHRIS [Suspect]
     Indication: SCHIZOAFFECTIVE DISORDER BIPOLAR TYPE
     Dosage: 5 MG;BID;PO, 10 MG;BID;PO, 10 MG;TID;PO
     Route: 048

REACTIONS (3)
  - REFUSAL OF TREATMENT BY PATIENT [None]
  - HYPOMANIA [None]
  - CONDITION AGGRAVATED [None]
